FAERS Safety Report 18200226 (Version 9)
Quarter: 2021Q2

REPORT INFORMATION
  Report Type: Spontaneous
  Country: US (occurrence: US)
  Receive Date: 20200826
  Receipt Date: 20210624
  Transmission Date: 20210717
  Serious: Yes (Hospitalization, Congenital Anomaly, Other)
  Sender: FDA-Public Use
  Company Number: NVSC2020US234875

PATIENT
  Age: 0 Day
  Sex: Male

DRUGS (2)
  1. ZOFRAN [Suspect]
     Active Substance: ONDANSETRON HYDROCHLORIDE
     Indication: FOETAL EXPOSURE DURING PREGNANCY
     Dosage: MOTHER DOSE: 08 MG, Q6H, PRN
     Route: 064
  2. ZOFRAN [Suspect]
     Active Substance: ONDANSETRON HYDROCHLORIDE
     Indication: FOETAL EXPOSURE DURING PREGNANCY
     Route: 064

REACTIONS (130)
  - Laryngeal web [Unknown]
  - Hypotonia [Unknown]
  - Pneumonia [Unknown]
  - Otitis media chronic [Unknown]
  - Tracheomalacia [Unknown]
  - Cellulitis [Unknown]
  - Cerebral palsy [Unknown]
  - Ileus [Unknown]
  - Chronic respiratory disease [Unknown]
  - Anxiety [Unknown]
  - Injury [Unknown]
  - Eye movement disorder [Unknown]
  - Snoring [Unknown]
  - Oedema [Unknown]
  - Stridor [Unknown]
  - Tracheitis [Unknown]
  - Lethargy [Unknown]
  - Status epilepticus [Unknown]
  - Neonatal respiratory failure [Unknown]
  - Atelectasis neonatal [Unknown]
  - Bronchopulmonary dysplasia [Unknown]
  - Deafness [Unknown]
  - Bronchiectasis [Unknown]
  - Tricuspid valve incompetence [Unknown]
  - Hypertension [Unknown]
  - Chromosomal deletion [Unknown]
  - Haemosiderosis [Unknown]
  - Influenza [Unknown]
  - Underweight [Unknown]
  - Viral rash [Unknown]
  - Pneumonia aspiration [Unknown]
  - Hydronephrosis [Unknown]
  - Bradycardia [Unknown]
  - Facial paralysis [Unknown]
  - Pulmonary haemorrhage [Unknown]
  - Bronchial hyperreactivity [Unknown]
  - Dyspnoea [Unknown]
  - Adenoidal hypertrophy [Unknown]
  - Speech disorder [Unknown]
  - Abdominal pain [Unknown]
  - Epistaxis [Unknown]
  - Constipation [Unknown]
  - Left-to-right cardiac shunt [Unknown]
  - Developmental hip dysplasia [Unknown]
  - Dysmorphism [Unknown]
  - Weight gain poor [Unknown]
  - Aspiration [Unknown]
  - Staphylococcal infection [Unknown]
  - Retching [Unknown]
  - Failure to thrive [Unknown]
  - Sepsis [Unknown]
  - Urinary retention [Unknown]
  - Speech disorder developmental [Unknown]
  - Emotional distress [Unknown]
  - Gastrooesophageal reflux disease [Unknown]
  - Bronchitis [Unknown]
  - Umbilical hernia [Unknown]
  - Blood creatinine increased [Unknown]
  - Decreased appetite [Unknown]
  - Wheezing [Unknown]
  - Diarrhoea [Unknown]
  - Middle ear effusion [Unknown]
  - Micrognathia [Unknown]
  - Hypoxia [Unknown]
  - Leukopenia [Unknown]
  - Hemiparesis [Unknown]
  - Epilepsy [Unknown]
  - Pulmonary valve incompetence [Unknown]
  - Eating disorder [Unknown]
  - Liver disorder [Unknown]
  - Feeding disorder [Unknown]
  - Hypotension [Unknown]
  - Gastroenteritis [Unknown]
  - Iron deficiency anaemia [Unknown]
  - Granuloma [Unknown]
  - Tonsillar hypertrophy [Unknown]
  - Chronic obstructive pulmonary disease [Unknown]
  - Patent ductus arteriosus [Unknown]
  - Oesophageal atresia [Unknown]
  - Craniofacial deformity [Unknown]
  - Skull malformation [Unknown]
  - Laryngomalacia [Unknown]
  - Bacteraemia [Unknown]
  - Neonatal pneumothorax [Unknown]
  - Respiratory distress [Unknown]
  - Pancreatitis [Unknown]
  - Pain [Not Recovered/Not Resolved]
  - Dysphagia [Unknown]
  - Otorrhoea [Unknown]
  - Malnutrition [Unknown]
  - Seasonal allergy [Unknown]
  - Upper respiratory tract infection [Unknown]
  - Lung consolidation [Unknown]
  - Eustachian tube dysfunction [Unknown]
  - Dermatitis [Unknown]
  - Abdominal distension [Unknown]
  - Atrial septal defect [Unknown]
  - Anal atresia [Unknown]
  - Sleep apnoea syndrome [Unknown]
  - Upper airway obstruction [Unknown]
  - Feeding intolerance [Unknown]
  - Pyrexia [Unknown]
  - Gastroenteritis viral [Unknown]
  - Bronchiolitis [Unknown]
  - Premature baby [Unknown]
  - Autism spectrum disorder [Unknown]
  - Infantile apnoea [Unknown]
  - Foetal exposure during pregnancy [Unknown]
  - Developmental delay [Unknown]
  - Asthma [Unknown]
  - Tachycardia [Unknown]
  - Hyperbilirubinaemia neonatal [Unknown]
  - Strabismus [Unknown]
  - Cyanosis [Unknown]
  - Discomfort [Unknown]
  - Respiratory acidosis [Unknown]
  - Glossoptosis [Unknown]
  - Cough [Unknown]
  - Cleft palate [Unknown]
  - Tooth hypoplasia [Unknown]
  - Otospondylomegaepiphyseal dysplasia [Unknown]
  - Dehydration [Unknown]
  - Seizure [Unknown]
  - Pyelocaliectasis [Unknown]
  - Neonatal tachypnoea [Unknown]
  - Hypothermia [Unknown]
  - Anaemia neonatal [Unknown]
  - Erythema [Unknown]
  - Respiratory syncytial virus infection [Unknown]
  - Lung disorder [Unknown]

NARRATIVE: CASE EVENT DATE: 20110904
